FAERS Safety Report 17513337 (Version 1)
Quarter: 2020Q1

REPORT INFORMATION
  Report Type: Report from Study
  Country: US (occurrence: US)
  Receive Date: 20200306
  Receipt Date: 20200306
  Transmission Date: 20200409
  Serious: Yes (Hospitalization)
  Sender: FDA-Public Use
  Company Number: US-BIOMARINP-001143

PATIENT
  Age: 29 Year
  Sex: Female
  Weight: 101.4 kg

DRUGS (4)
  1. TUMS [Concomitant]
     Active Substance: CALCIUM CARBONATE
     Indication: DYSPEPSIA
     Dosage: 500MG,BID
     Route: 048
     Dates: start: 20091029
  2. PHENYL FREE [Concomitant]
     Indication: PHENYLKETONURIA
     Dosage: 330G,QID
     Route: 048
  3. KUVAN [Suspect]
     Active Substance: SAPROPTERIN DIHYDROCHLORIDE
     Indication: PHENYLKETONURIA
     Dosage: 1900MG,QD
     Route: 048
     Dates: start: 20090505
  4. PRENATAL VITAMINS [Concomitant]
     Active Substance: VITAMINS
     Indication: VITAMIN SUPPLEMENTATION
     Dosage: 1DF,QD
     Route: 048
     Dates: start: 20090701

REACTIONS (3)
  - Urinary tract infection [Recovered/Resolved]
  - Premature labour [Recovered/Resolved]
  - Maternal exposure during pregnancy [Recovered/Resolved]

NARRATIVE: CASE EVENT DATE: 20091124
